FAERS Safety Report 21504506 (Version 1)
Quarter: 2022Q4

REPORT INFORMATION
  Report Type: Spontaneous
  Country: US (occurrence: US)
  Receive Date: 20221025
  Receipt Date: 20221025
  Transmission Date: 20230113
  Serious: No
  Sender: FDA-Public Use
  Company Number: US-MYLANLABS-2022M1111534

PATIENT
  Age: 16 Year
  Sex: Female
  Weight: 55.79 kg

DRUGS (1)
  1. MEDROXYPROGESTERONE ACETATE [Suspect]
     Active Substance: MEDROXYPROGESTERONE ACETATE
     Indication: Contraception
     Dosage: 150 MILLIGRAM PER MILLILITRE, 3XMONTHS
     Route: 030
     Dates: start: 20220920

REACTIONS (2)
  - Incorrect dose administered by product [Unknown]
  - Product quality issue [Unknown]

NARRATIVE: CASE EVENT DATE: 20220920
